FAERS Safety Report 13001013 (Version 2)
Quarter: 2016Q4

REPORT INFORMATION
  Report Type: Spontaneous
  Country: US (occurrence: US)
  Receive Date: 20161206
  Receipt Date: 20161206
  Transmission Date: 20170207
  Serious: Yes (Hospitalization)
  Sender: FDA-Public Use
  Company Number: US-ASTRAZENECA-2016SF27082

PATIENT
  Age: 835 Month
  Sex: Female
  Weight: 56.7 kg

DRUGS (3)
  1. TYLENOL [Concomitant]
     Active Substance: ACETAMINOPHEN
     Indication: HEADACHE
     Route: 048
  2. SYMBICORT [Suspect]
     Active Substance: BUDESONIDE\FORMOTEROL FUMARATE DIHYDRATE
     Indication: BRONCHITIS
     Dosage: 80/4.5 MICROGRAMS, TWO PUFFS, TWICE DAILY
     Route: 055
     Dates: start: 201412
  3. SYMBICORT [Suspect]
     Active Substance: BUDESONIDE\FORMOTEROL FUMARATE DIHYDRATE
     Indication: EMPHYSEMA
     Dosage: 80/4.5 MICROGRAMS, TWO PUFFS, TWICE DAILY
     Route: 055
     Dates: start: 201412

REACTIONS (13)
  - Skin infection [Recovered/Resolved]
  - Acute kidney injury [Recovered/Resolved]
  - Bone cancer [Unknown]
  - Candida infection [Recovered/Resolved]
  - Contusion [Not Recovered/Not Resolved]
  - Pneumonia [Recovered/Resolved]
  - Peroneal nerve palsy [Recovered/Resolved]
  - Product use issue [Unknown]
  - Headache [Not Recovered/Not Resolved]
  - Muscle spasms [Not Recovered/Not Resolved]
  - Clostridium difficile infection [Recovered/Resolved]
  - Skin atrophy [Not Recovered/Not Resolved]
  - Off label use [Not Recovered/Not Resolved]

NARRATIVE: CASE EVENT DATE: 201412
